FAERS Safety Report 17889176 (Version 2)
Quarter: 2020Q2

REPORT INFORMATION
  Report Type: Report from Study
  Country: GT (occurrence: GT)
  Receive Date: 20200612
  Receipt Date: 20200620
  Transmission Date: 20200714
  Serious: Yes (Death)
  Sender: FDA-Public Use
  Company Number: NVSC2020GT164025

PATIENT
  Age: 82 Year
  Sex: Male
  Weight: 58.96 kg

DRUGS (3)
  1. VYMADA [Suspect]
     Active Substance: SACUBITRIL\VALSARTAN
     Indication: FATIGUE
     Dosage: 1 DF, Q12H
     Route: 048
     Dates: start: 201901
  2. LASIX [Concomitant]
     Active Substance: FUROSEMIDE
     Indication: PRODUCT USED FOR UNKNOWN INDICATION
     Dosage: 2 DF (1 TABLET IN THE MORNING AND 1 AT THE NIGHT)
     Route: 048
  3. VYMADA [Suspect]
     Active Substance: SACUBITRIL\VALSARTAN
     Indication: HYPERTENSION
     Dosage: 100 MG, UNKNOWN (2 YEARS AGO)
     Route: 065

REACTIONS (5)
  - Testicular swelling [Fatal]
  - Off label use [Unknown]
  - Death [Fatal]
  - Swelling [Fatal]
  - Peripheral swelling [Fatal]

NARRATIVE: CASE EVENT DATE: 201903
